FAERS Safety Report 13740953 (Version 1)
Quarter: 2017Q3

REPORT INFORMATION
  Report Type: Spontaneous
  Country: US (occurrence: US)
  Receive Date: 20170710
  Receipt Date: 20170710
  Transmission Date: 20171127
  Serious: No
  Sender: FDA-Public Use
  Company Number: None

PATIENT
  Age: 27 Year
  Sex: Male
  Weight: 90 kg

DRUGS (1)
  1. SALONPAS PAIN RELIEVING [Suspect]
     Active Substance: CAMPHOR (SYNTHETIC)\MENTHOL\METHYL SALICYLATE
     Indication: MUSCULOSKELETAL DISCOMFORT
     Dosage: 1 PATCH(ES) AS NEEDED TRANSDERMAL
     Route: 062

REACTIONS (7)
  - Application site erythema [None]
  - Application site discolouration [None]
  - Application site exfoliation [None]
  - Application site dryness [None]
  - Application site discomfort [None]
  - Application site pain [None]
  - Skin fissures [None]

NARRATIVE: CASE EVENT DATE: 20170707
